FAERS Safety Report 18633485 (Version 1)
Quarter: 2020Q4

REPORT INFORMATION
  Report Type: Spontaneous
  Country: US (occurrence: US)
  Receive Date: 20201218
  Receipt Date: 20201218
  Transmission Date: 20210114
  Serious: Yes (Death)
  Sender: FDA-Public Use
  Company Number: US-PFIZER INC-2020421785

PATIENT
  Age: 67 Year
  Sex: Male

DRUGS (1)
  1. MEKTOVI [Suspect]
     Active Substance: BINIMETINIB
     Indication: PANCREATIC CARCINOMA
     Dosage: 45 MG

REACTIONS (3)
  - Off label use [Unknown]
  - Death [Fatal]
  - Drug effective for unapproved indication [Unknown]

NARRATIVE: CASE EVENT DATE: 20201214
